FAERS Safety Report 5759199-7 (Version None)
Quarter: 2008Q2

REPORT INFORMATION
  Report Type: 
  Country: None (occurrence: None)
  Receive Date: 20080604
  Receipt Date: 20080523
  Transmission Date: 20081010
  Serious: Yes (Other)
  Sender: FDA-Public Use
  Company Number: CH-PFIZER INC-2008042542

PATIENT
  Age: 60 Year
  Sex: Female

DRUGS (1)
  1. ZITHROMAX [Suspect]

REACTIONS (3)
  - GRAND MAL CONVULSION [None]
  - LIVER FUNCTION TEST ABNORMAL [None]
  - MALAISE [None]
